FAERS Safety Report 9554025 (Version 2)
Quarter: 2013Q4

REPORT INFORMATION
  Report Type: Spontaneous
  Country: US (occurrence: US)
  Receive Date: 20130925
  Receipt Date: 20131022
  Transmission Date: 20140711
  Serious: Yes (Other)
  Sender: FDA-Public Use
  Company Number: US-TEVA-434421USA

PATIENT
  Sex: Female

DRUGS (5)
  1. PARAGARD 380A [Suspect]
     Indication: CONTRACEPTION
     Route: 015
     Dates: start: 20111220, end: 20130920
  2. PROMETRIUM [Concomitant]
     Dosage: 200 MILLIGRAM DAILY;
     Dates: start: 20130923
  3. REGLAN [Concomitant]
     Dosage: 10 MG, EVERY 6 HOURS, PRN
     Dates: start: 20130923
  4. WELLBUTRIN XL [Concomitant]
     Dosage: 1 EVERYDAY
     Dates: start: 20111220
  5. TYLENOL [Concomitant]
     Dosage: 1 EVERY 4 HOURS PRN
     Route: 048

REACTIONS (2)
  - Pregnancy with contraceptive device [Unknown]
  - Drug ineffective [Unknown]
